FAERS Safety Report 10258228 (Version 2)
Quarter: 2014Q3

REPORT INFORMATION
  Report Type: Spontaneous
  Country: RS (occurrence: RS)
  Receive Date: 20140625
  Receipt Date: 20140709
  Transmission Date: 20150326
  Serious: Yes (Death, Life-Threatening, Other)
  Sender: FDA-Public Use
  Company Number: PHHY2014RS078090

PATIENT
  Age: 83 Year
  Sex: Female

DRUGS (12)
  1. EXELON [Suspect]
     Active Substance: RIVASTIGMINE TARTRATE
     Indication: DEMENTIA ALZHEIMER^S TYPE
     Dosage: 0.5 ML IN THE MORNING ONCE WEEKLY
     Route: 048
  2. OHB 12 [Concomitant]
     Dosage: ONCE MONTHLY
  3. PROPAFEN [Concomitant]
     Dosage: UNK UKN, UNK
  4. OIKAMID [Concomitant]
     Dosage: UNK UKN, UNK
  5. MONIZOL//ISOSORBIDE MONONITRATE [Concomitant]
     Dosage: 40 MG, BID
  6. EGLONYL [Concomitant]
     Dosage: 50 MG, BID
  7. EXELON [Suspect]
     Active Substance: RIVASTIGMINE TARTRATE
     Dosage: 4 ML, BID
     Route: 048
     Dates: start: 2010
  8. MONOPRIL [Concomitant]
     Active Substance: FOSINOPRIL SODIUM
     Dosage: 20 MG, QD
  9. MOLSICOR [Concomitant]
     Active Substance: MOLSIDOMINE
     Dosage: IN THE EVENING
  10. TANAKAN [Concomitant]
     Active Substance: GINKGO
     Dosage: UNK UKN, TID
  11. AMINOPHYLLINE [Concomitant]
     Active Substance: AMINOPHYLLINE
     Dosage: ONCE MONTHLY
  12. LAXATIVE [Concomitant]
     Active Substance: UNSPECIFIED INGREDIENT
     Dosage: UNK UKN, UNK

REACTIONS (7)
  - Coma [Unknown]
  - Circulatory collapse [Unknown]
  - Cerebrovascular accident [Fatal]
  - Cardiac arrest [Fatal]
  - Cardiomyopathy [Fatal]
  - Hypotension [Fatal]
  - Loss of consciousness [Unknown]

NARRATIVE: CASE EVENT DATE: 201008
